FAERS Safety Report 8574790-0 (Version None)
Quarter: 2012Q3

REPORT INFORMATION
  Report Type: 
  Country: None (occurrence: None)
  Receive Date: 20120807
  Receipt Date: 20110607
  Transmission Date: 20120928
  Serious: Yes (Hospitalization, Other)
  Sender: FDA-Public Use
  Company Number: US-009507513-2010SP014788

PATIENT
  Sex: Female
  Weight: 88.91 kg

DRUGS (1)
  1. NUVARING [Suspect]
     Indication: CONTRACEPTION
     Dates: start: 20080101, end: 20080305

REACTIONS (19)
  - DYSPNOEA [None]
  - DEPRESSION [None]
  - OVARIAN CYST [None]
  - THROMBOSIS [None]
  - SLEEP APNOEA SYNDROME [None]
  - CARDIAC MURMUR [None]
  - WEIGHT INCREASED [None]
  - HEART RATE INCREASED [None]
  - PULMONARY INFARCTION [None]
  - MYALGIA [None]
  - ARTHRALGIA [None]
  - SUPRAVENTRICULAR TACHYCARDIA [None]
  - SYNCOPE [None]
  - PULMONARY EMBOLISM [None]
  - EPISTAXIS [None]
  - MOOD SWINGS [None]
  - HYPERCOAGULATION [None]
  - TRANSIENT ISCHAEMIC ATTACK [None]
  - VISION BLURRED [None]
